FAERS Safety Report 4688155-5 (Version None)
Quarter: 2005Q2

REPORT INFORMATION
  Report Type: 
  Country: None (occurrence: None)
  Receive Date: 20050610
  Receipt Date: 20050602
  Transmission Date: 20051028
  Serious: Yes (Other)
  Sender: FDA-Public Use
  Company Number: PHEH2005US06275

PATIENT
  Age: 61 Year
  Sex: Female

DRUGS (2)
  1. ZOMETA [Suspect]
     Indication: MULTIPLE MYELOMA
     Dosage: 4 MG Q4WKS
  2. CHEMOTHERAPEUTICS,OTHER [Concomitant]

REACTIONS (3)
  - ASEPTIC NECROSIS BONE [None]
  - HYPERBARIC OXYGEN THERAPY [None]
  - TOOTH EXTRACTION [None]
